FAERS Safety Report 20030899 (Version 2)
Quarter: 2021Q4

REPORT INFORMATION
  Report Type: Spontaneous
  Country: FR (occurrence: FR)
  Receive Date: 20211103
  Receipt Date: 20211103
  Transmission Date: 20220303
  Serious: Yes (Other)
  Sender: FDA-Public Use
  Company Number: None

PATIENT
  Age: 21 Year
  Sex: Female

DRUGS (3)
  1. SPRAVATO [Suspect]
     Active Substance: ESKETAMINE
     Indication: Major depression
     Dosage: ; IN TOTAL
     Dates: start: 20210917, end: 20210917
  2. SERTRALINE HYDROCHLORIDE [Concomitant]
     Active Substance: SERTRALINE HYDROCHLORIDE
  3. LORAZEPAM [Concomitant]
     Active Substance: LORAZEPAM

REACTIONS (1)
  - Dissociation [Recovered/Resolved]

NARRATIVE: CASE EVENT DATE: 20210917
